FAERS Safety Report 8200253-8 (Version None)
Quarter: 2012Q1

REPORT INFORMATION
  Report Type: 
  Country: None (occurrence: None)
  Receive Date: 20120312
  Receipt Date: 20120310
  Transmission Date: 20120608
  Serious: Yes (Hospitalization, Other)
  Sender: FDA-Public Use
  Company Number: US-PFIZER INC-2012063711

PATIENT
  Sex: Male
  Weight: 101.13 kg

DRUGS (4)
  1. ZOLOFT [Suspect]
     Dosage: 100 MG, 1X/DAY
     Route: 048
     Dates: end: 20120307
  2. LISINOPRIL [Concomitant]
     Indication: HYPERTENSION
     Dosage: 10 MG, UNK
  3. ZOLOFT [Suspect]
     Indication: DEPRESSION
     Dosage: 50 MG, 1X/DAY
     Route: 048
  4. ZOLOFT [Suspect]
     Dosage: 50 MG, 1X/DAY
     Route: 048
     Dates: start: 20120308

REACTIONS (6)
  - ASTHENIA [None]
  - TREMOR [None]
  - DIZZINESS [None]
  - VISUAL IMPAIRMENT [None]
  - STRESS [None]
  - DEPRESSION [None]
